FAERS Safety Report 7806615-2 (Version None)
Quarter: 2011Q4

REPORT INFORMATION
  Report Type: 
  Country: None (occurrence: None)
  Receive Date: 20111011
  Receipt Date: 20111006
  Transmission Date: 20120403
  Serious: Yes (Other)
  Sender: FDA-Public Use
  Company Number: IT-ABBOTT-11P-083-0852913-00

PATIENT
  Sex: Male

DRUGS (14)
  1. DIAZEPAM [Concomitant]
     Indication: PRODUCT USED FOR UNKNOWN INDICATION
     Dates: start: 20101001
  2. CLOZAPINE [Interacting]
     Dosage: DAILY
     Route: 065
     Dates: end: 20100601
  3. ARIPIPRAZOLE [Concomitant]
     Indication: PRODUCT USED FOR UNKNOWN INDICATION
  4. CLOZAPINE [Interacting]
     Indication: SCHIZOPHRENIA
     Dates: start: 20100423
  5. BETAMETHASONE [Concomitant]
     Indication: PRODUCT USED FOR UNKNOWN INDICATION
  6. AMOXICILLIN [Concomitant]
     Indication: PRODUCT USED FOR UNKNOWN INDICATION
  7. ACETYLCYSTEINE [Concomitant]
     Indication: PRODUCT USED FOR UNKNOWN INDICATION
  8. VALPROIC ACID [Interacting]
     Indication: SCHIZOPHRENIA
     Dosage: DAILY
     Route: 065
     Dates: start: 20100903
  9. AMISULPRIDE [Concomitant]
     Indication: PRODUCT USED FOR UNKNOWN INDICATION
  10. CLONAZEPAM [Concomitant]
     Indication: PRODUCT USED FOR UNKNOWN INDICATION
  11. HALOPERIDOL [Concomitant]
     Indication: PRODUCT USED FOR UNKNOWN INDICATION
  12. RISPERIDONE [Suspect]
     Indication: SCHIZOPHRENIA
     Dates: start: 20100628
  13. RISPERIDONE [Suspect]
     Dosage: DAILY
     Route: 065
     Dates: start: 20101001
  14. CLOZAPINE [Interacting]
     Dosage: DAILY
     Route: 065
     Dates: start: 20101001

REACTIONS (7)
  - PSYCHOTIC DISORDER [None]
  - DRUG INTERACTION [None]
  - DRUG LEVEL DECREASED [None]
  - SELF INJURIOUS BEHAVIOUR [None]
  - THINKING ABNORMAL [None]
  - BODY DYSMORPHIC DISORDER [None]
  - SPEECH DISORDER [None]
